FAERS Safety Report 25825338 (Version 6)
Quarter: 2025Q4

REPORT INFORMATION
  Report Type: Report from Study
  Country: CA (occurrence: CA)
  Receive Date: 20250919
  Receipt Date: 20251218
  Transmission Date: 20260118
  Serious: Yes (Other)
  Sender: ALEXION PHARMACEUTICALS
  Company Number: CA-AstraZeneca-CH-00952555A

PATIENT
  Sex: Male

DRUGS (7)
  1. BENRALIZUMAB [Suspect]
     Active Substance: BENRALIZUMAB
     Indication: Asthma
     Dosage: 30 MILLIGRAM
     Dates: start: 20250819, end: 20250915
  2. BENRALIZUMAB [Suspect]
     Active Substance: BENRALIZUMAB
  3. PREDNISONE [Concomitant]
     Active Substance: PREDNISONE
     Route: 065
  4. PULMICORT TURBUHALER [Concomitant]
     Active Substance: BUDESONIDE
     Route: 065
  5. VENTOLIN [Concomitant]
     Active Substance: ALBUTEROL SULFATE
     Route: 065
  6. IPRATROPIUM [Concomitant]
     Active Substance: IPRATROPIUM
     Route: 065
  7. OXYGEN [Concomitant]
     Active Substance: OXYGEN
     Route: 065

REACTIONS (10)
  - Choking [Unknown]
  - Blood glucose decreased [Unknown]
  - Diabetes mellitus [Unknown]
  - Dyspnoea [Unknown]
  - Oropharyngeal pain [Unknown]
  - Contusion [Unknown]
  - Limb discomfort [Unknown]
  - Candida infection [Unknown]
  - Therapy cessation [Unknown]
  - Dysphagia [Unknown]
